FAERS Safety Report 6981737-7 (Version None)
Quarter: 2010Q3

REPORT INFORMATION
  Report Type: 
  Country: None (occurrence: None)
  Receive Date: 20100914
  Receipt Date: 20091102
  Transmission Date: 20110219
  Serious: Yes (Other)
  Sender: FDA-Public Use
  Company Number: US-PFIZER INC-2009253108

PATIENT
  Sex: Female
  Weight: 68.027 kg

DRUGS (18)
  1. LYRICA [Suspect]
     Indication: FIBROMYALGIA
     Dosage: 50 MG, 2X/DAY
     Route: 048
     Dates: start: 20090101, end: 20090101
  2. PRILOSEC [Concomitant]
     Dosage: UNK
  3. FIBERCON [Concomitant]
     Dosage: UNK
  4. SINEMET [Concomitant]
     Dosage: UNK
  5. VOLTAREN [Concomitant]
     Dosage: UNK
  6. PLAQUENIL [Concomitant]
     Dosage: UNK
  7. HYZAAR [Concomitant]
     Dosage: UNK
  8. SYNTHROID [Concomitant]
     Dosage: UNK
  9. WELLBUTRIN XL [Concomitant]
     Dosage: UNK
  10. POTASSIUM [Concomitant]
     Dosage: UNK
  11. SERZONE [Concomitant]
     Dosage: UNK
  12. FLEXERIL [Concomitant]
     Dosage: UNK
  13. VERAMYST [Concomitant]
     Dosage: UNK
  14. SONATA [Concomitant]
     Dosage: UNK
  15. IMITREX [Concomitant]
     Dosage: UNK
  16. CYCLOSPORINE [Concomitant]
     Dosage: UNK
  17. VICODIN [Concomitant]
     Dosage: UNK
  18. BENADRYL [Concomitant]
     Dosage: UNK

REACTIONS (2)
  - DEPRESSION [None]
  - SUICIDAL IDEATION [None]
